FAERS Safety Report 9213749 (Version 8)
Quarter: 2013Q3

REPORT INFORMATION
  Report Type: Spontaneous
  Country: JP (occurrence: JP)
  Receive Date: 20130405
  Receipt Date: 20130924
  Transmission Date: 20140515
  Serious: Yes (Hospitalization)
  Sender: FDA-Public Use
  Company Number: JP-PFIZER INC-2013107714

PATIENT
  Age: 34 Year
  Sex: Male
  Weight: 74.4 kg

DRUGS (1)
  1. CHAMPIX [Suspect]
     Indication: SMOKING CESSATION THERAPY
     Dosage: 1 MG, 2X/DAY
     Route: 048
     Dates: start: 20130227, end: 20130323

REACTIONS (2)
  - Drug-induced liver injury [Recovered/Resolved]
  - Nausea [Recovered/Resolved]
